FAERS Safety Report 10783862 (Version 2)
Quarter: 2015Q1

REPORT INFORMATION
  Report Type: Spontaneous
  Country: CN (occurrence: CN)
  Receive Date: 20150210
  Receipt Date: 20150217
  Transmission Date: 20150721
  Serious: Yes (Other)
  Sender: FDA-Public Use
  Company Number: CN-BAYER-2013-089059

PATIENT
  Age: 32 Year
  Sex: Female

DRUGS (1)
  1. CANESTEN (KAINITING) [Suspect]
     Active Substance: CLOTRIMAZOLE
     Dosage: 1 DF, ONCE
     Route: 067
     Dates: start: 20130721

REACTIONS (4)
  - Abdominal pain upper [Recovered/Resolved]
  - Myalgia [Recovered/Resolved]
  - Nausea [Recovered/Resolved]
  - Haematemesis [Recovered/Resolved]

NARRATIVE: CASE EVENT DATE: 201307
